FAERS Safety Report 25701236 (Version 1)
Quarter: 2025Q3

REPORT INFORMATION
  Report Type: Spontaneous
  Country: US (occurrence: US)
  Receive Date: 20250819
  Receipt Date: 20250819
  Transmission Date: 20251021
  Serious: Yes (Other)
  Sender: ROCHE
  Company Number: US-ROCHE-10000359932

PATIENT
  Age: 65 Year
  Sex: Female
  Weight: 60.8 kg

DRUGS (3)
  1. GAZYVA [Suspect]
     Active Substance: OBINUTUZUMAB
     Indication: Chronic lymphocytic leukaemia
     Route: 042
     Dates: start: 2021
  2. GAZYVA [Suspect]
     Active Substance: OBINUTUZUMAB
     Route: 042
     Dates: start: 20250806
  3. GAZYVA [Suspect]
     Active Substance: OBINUTUZUMAB
     Route: 042
     Dates: start: 20250807

REACTIONS (3)
  - Chronic lymphocytic leukaemia recurrent [Not Recovered/Not Resolved]
  - Agitation [Unknown]
  - Restlessness [Unknown]

NARRATIVE: CASE EVENT DATE: 20241101
